FAERS Safety Report 4263727-0 (Version None)
Quarter: 2004Q1

REPORT INFORMATION
  Report Type: 
  Country: None (occurrence: None)
  Receive Date: 20040102
  Receipt Date: 20031219
  Transmission Date: 20041129
  Serious: Yes (Life-Threatening)
  Sender: FDA-Public Use
  Company Number: 2003AP04387

PATIENT
  Age: 35 Year
  Sex: Female

DRUGS (2)
  1. OMEPRAZOLE [Suspect]
     Indication: GASTRIC ULCER
     Dosage: 10 MG DAILY PO
     Route: 048
     Dates: start: 20030401, end: 20031201
  2. GASTER [Concomitant]

REACTIONS (4)
  - ANAEMIA [None]
  - PYREXIA [None]
  - SPLENOMEGALY [None]
  - THROMBOCYTOPENIA [None]
